FAERS Safety Report 9358001 (Version 1)
Quarter: 2013Q2

REPORT INFORMATION
  Report Type: Spontaneous
  Country: US (occurrence: None)
  Receive Date: 20130619
  Receipt Date: 20130619
  Transmission Date: 20140414
  Serious: No
  Sender: FDA-Public Use
  Company Number: None

PATIENT
  Age: 51 Year
  Sex: Female

DRUGS (3)
  1. CYMBALTA [Suspect]
     Indication: DEPRESSION
     Route: 048
     Dates: start: 200710
  2. CYMBALTA [Suspect]
     Indication: DEPRESSION
     Route: 048
     Dates: end: 200811
  3. MULTIVITAMIN [Concomitant]

REACTIONS (3)
  - Alcohol abuse [None]
  - Amnesia [None]
  - Paraesthesia [None]
